FAERS Safety Report 4562708-7 (Version None)
Quarter: 2005Q1

REPORT INFORMATION
  Report Type: 
  Country: None (occurrence: None)
  Receive Date: 20050124
  Receipt Date: 20050117
  Transmission Date: 20050727
  Serious: Yes (Other)
  Sender: FDA-Public Use
  Company Number: 2005015531

PATIENT
  Age: 44 Year
  Sex: Male

DRUGS (5)
  1. LIPITOR [Suspect]
     Indication: ANGINA PECTORIS
     Dosage: 20 MG, ORAL
     Route: 048
     Dates: start: 20040701, end: 20050117
  2. BETA BLOCKING AGENTS (BETA BLOCKING AGENTS) [Concomitant]
  3. ASPIRIN [Concomitant]
  4. ALL OTHER THERAPEUTIC PRODUCTS (ALL OTHER THERAPEUTIC PRODUCTS) [Concomitant]
  5. OMEPRAZOLE [Concomitant]

REACTIONS (3)
  - AMNESIA [None]
  - INSOMNIA [None]
  - OCULOGYRATION [None]
